FAERS Safety Report 4525288-8 (Version None)
Quarter: 2004Q4

REPORT INFORMATION
  Report Type: 
  Country: None (occurrence: None)
  Receive Date: 20041213
  Receipt Date: 20041125
  Transmission Date: 20050328
  Serious: Yes (Death, Life-Threatening)
  Sender: FDA-Public Use
  Company Number: JP-ROCHE-387238

PATIENT
  Age: 20 Year
  Sex: Female

DRUGS (3)
  1. ROCEPHIN [Suspect]
     Indication: PNEUMONIA
     Route: 042
     Dates: start: 20041106, end: 20041109
  2. DALACIN [Suspect]
     Indication: PNEUMONIA
     Route: 050
     Dates: start: 20041106
  3. CONTOMIN [Suspect]
     Indication: DRUG USE FOR UNKNOWN INDICATION
     Route: 048

REACTIONS (5)
  - ACUTE RESPIRATORY DISTRESS SYNDROME [None]
  - DISSEMINATED INTRAVASCULAR COAGULATION [None]
  - INTERSTITIAL LUNG DISEASE [None]
  - LUNG INJURY [None]
  - STAPHYLOCOCCAL INFECTION [None]
